FAERS Safety Report 13128364 (Version 1)
Quarter: 2017Q1

REPORT INFORMATION
  Report Type: Spontaneous
  Country: None (occurrence: US)
  Receive Date: 20170118
  Receipt Date: 20170118
  Transmission Date: 20170428
  Serious: Yes (Other)
  Sender: FDA-Public Use
  Company Number: US-NEXGEN PHARMA, INC.-1062132

PATIENT
  Sex: Female

DRUGS (1)
  1. BUTALBITAL AND ACETAMINOPHEN TABLET [Suspect]
     Active Substance: ACETAMINOPHEN\BUTALBITAL
     Indication: TENSION HEADACHE
     Route: 048

REACTIONS (1)
  - Migraine [Recovered/Resolved]

NARRATIVE: CASE EVENT DATE: 20170117
